FAERS Safety Report 9660917 (Version 2)
Quarter: 2013Q4

REPORT INFORMATION
  Report Type: Spontaneous
  Country: FR (occurrence: FR)
  Receive Date: 20131031
  Receipt Date: 20131220
  Transmission Date: 20140711
  Serious: Yes (Death)
  Sender: FDA-Public Use
  Company Number: FR-JNJFOC-20131018157

PATIENT
  Age: 76 Year
  Sex: Male

DRUGS (6)
  1. XARELTO [Suspect]
     Indication: EMBOLISM VENOUS
     Route: 048
     Dates: start: 20130914, end: 20130918
  2. XARELTO [Suspect]
     Indication: EMBOLISM VENOUS
     Route: 048
     Dates: start: 20130831, end: 20130913
  3. XARELTO [Suspect]
     Indication: DEEP VEIN THROMBOSIS
     Route: 048
     Dates: start: 20130831, end: 20130913
  4. XARELTO [Suspect]
     Indication: DEEP VEIN THROMBOSIS
     Route: 048
     Dates: start: 20130914, end: 20130918
  5. TINZAPARIN SODIUM [Concomitant]
     Route: 058
     Dates: start: 20130824, end: 20130831
  6. PREVISCAN (FLUINDIONE) [Concomitant]
     Route: 048
     Dates: end: 20130824

REACTIONS (1)
  - Cerebrovascular accident [Fatal]
